FAERS Safety Report 6517050-1 (Version None)
Quarter: 2009Q4

REPORT INFORMATION
  Report Type: 
  Country: None (occurrence: None)
  Receive Date: 20091223
  Receipt Date: 20091210
  Transmission Date: 20100525
  Serious: Yes (Life-Threatening, Hospitalization, Other)
  Sender: FDA-Public Use
  Company Number: NG-B.I. PHARMACEUTICALS,INC./RIDGEFIELD-2009-DE-07668GD

PATIENT
  Age: 27 Year
  Sex: Female

DRUGS (4)
  1. NEVIRAPINE [Suspect]
     Indication: HIV INFECTION
  2. SEPTRIN [Suspect]
     Indication: PROPHYLAXIS
  3. ZIDOVUDINE [Concomitant]
     Indication: HIV INFECTION
  4. LAMIVUDINE [Concomitant]
     Indication: HIV INFECTION

REACTIONS (11)
  - DERMATITIS EXFOLIATIVE [None]
  - DRUG INTERACTION [None]
  - DRY EYE [None]
  - HYPOXIA [None]
  - KERATITIS [None]
  - PURULENT DISCHARGE [None]
  - STEVENS-JOHNSON SYNDROME [None]
  - SYMBLEPHARON [None]
  - TACHYCARDIA [None]
  - TACHYPNOEA [None]
  - VISUAL ACUITY REDUCED [None]
